FAERS Safety Report 5371606-0 (Version None)
Quarter: 2007Q2

REPORT INFORMATION
  Report Type: 
  Country: None (occurrence: None)
  Receive Date: 20070615
  Receipt Date: 20070301
  Transmission Date: 20071010
  Serious: Yes (Other)
  Sender: FDA-Public Use
  Company Number: 200612519US

PATIENT
  Age: 46 Year
  Sex: Female
  Weight: 61.8 kg

DRUGS (9)
  1. LANTUS [Suspect]
  2. LANTUS [Suspect]
     Dosage: 30 U HS
     Dates: start: 20060711
  3. LANTUS [Suspect]
     Dosage: 40 U HS
     Dates: start: 20061113
  4. AVANDIA [Concomitant]
  5. ACTOPLUS MET [Concomitant]
  6. METFORMIN, GLIBENCLAMIDE (GLUCOVANCE) [Concomitant]
  7. ZOCOR [Concomitant]
  8. ASPIRIN [Concomitant]
  9. POLYCARBOPHIL CALCIUM (FIBER) [Concomitant]

REACTIONS (14)
  - ARTHROPATHY [None]
  - BLOOD GLUCOSE INCREASED [None]
  - DIABETES MELLITUS INADEQUATE CONTROL [None]
  - DRUG INEFFECTIVE [None]
  - DYSAESTHESIA [None]
  - HYPERGLYCAEMIA [None]
  - HYPERLIPIDAEMIA [None]
  - HYPERTENSION [None]
  - MOBILITY DECREASED [None]
  - MYOSITIS [None]
  - NEUROPATHY [None]
  - PAIN IN EXTREMITY [None]
  - PARAESTHESIA [None]
  - SLEEP DISORDER [None]
